FAERS Safety Report 9595131 (Version 2)
Quarter: 2013Q4

REPORT INFORMATION
  Report Type: Spontaneous
  Country: US (occurrence: US)
  Receive Date: 20131004
  Receipt Date: 20131004
  Transmission Date: 20140711
  Serious: No
  Sender: FDA-Public Use
  Company Number: US-PURDUE-USA-2012-0091517

PATIENT
  Sex: Male

DRUGS (1)
  1. BUTRANS [Suspect]
     Indication: BACK PAIN
     Dosage: 10 MCG, UNK
     Route: 062
     Dates: start: 20120803

REACTIONS (6)
  - Inadequate analgesia [Not Recovered/Not Resolved]
  - Drug ineffective [Not Recovered/Not Resolved]
  - Device leakage [Not Recovered/Not Resolved]
  - Product colour issue [Unknown]
  - Hyperhidrosis [Unknown]
  - Body temperature increased [Unknown]
